FAERS Safety Report 12478688 (Version 2)
Quarter: 2016Q3

REPORT INFORMATION
  Report Type: Spontaneous
  Country: US (occurrence: US)
  Receive Date: 20160619
  Receipt Date: 20160829
  Transmission Date: 20161109
  Serious: Yes (Other)
  Sender: FDA-Public Use
  Company Number: US-BAXTER-2016BAX030809

PATIENT
  Sex: Female

DRUGS (23)
  1. AFINITOR [Suspect]
     Active Substance: EVEROLIMUS
     Route: 065
  2. CALCIUM 600+D3 [Concomitant]
     Active Substance: CALCIUM CARBONATE\VITAMIN D
     Indication: PRODUCT USED FOR UNKNOWN INDICATION
     Route: 065
  3. TAXOTERE [Suspect]
     Active Substance: DOCETAXEL
     Indication: BREAST CANCER RECURRENT
     Dosage: NEOADJUVANT CHEMOTHERAPY, 6 CYCLES
     Route: 065
  4. PERTUZUMAB [Suspect]
     Active Substance: PERTUZUMAB
     Indication: BREAST CANCER RECURRENT
     Dosage: NEOADJUVANT CHEMOTHERAPY, 6 CYCLES
     Route: 065
  5. CYCLOPHOSPHAMIDE FOR INJECTION, USP [Suspect]
     Active Substance: CYCLOPHOSPHAMIDE
     Indication: BREAST CANCER METASTATIC
     Dosage: 4 CYCLES, NEOADJUVANT CHEMOTHERAPY
     Route: 065
     Dates: start: 20111108, end: 201201
  6. HERCEPTIN [Suspect]
     Active Substance: TRASTUZUMAB
     Indication: BREAST CANCER RECURRENT
     Dosage: NEOADJUVANT CHEMOTHERAPY, 6 CYCLES
     Route: 065
  7. KADCYLA [Suspect]
     Active Substance: ADO-TRASTUZUMAB EMTANSINE
     Indication: DISEASE PROGRESSION
     Route: 065
     Dates: start: 20140520
  8. VITAMIN B COMPLEX [Concomitant]
     Active Substance: CYANOCOBALAMIN\DEXPANTHENOL\NIACINAMIDE\PYRIDOXINE HYDROCHLORIDE\RIBOFLAVIN 5^-PHOSPHATE SODIUM\THIAMINE HYDROCHLORIDE\VITAMIN B COMPLEX
     Indication: PRODUCT USED FOR UNKNOWN INDICATION
     Route: 065
  9. CARBOPLATIN. [Suspect]
     Active Substance: CARBOPLATIN
     Indication: BREAST CANCER RECURRENT
     Dosage: NEOADJUVANT CHEMOTHERAPY, 6 CYCLES
     Route: 065
  10. PERTUZUMAB [Suspect]
     Active Substance: PERTUZUMAB
     Route: 065
     Dates: start: 20140116
  11. ADRIAMYCIN [Suspect]
     Active Substance: DOXORUBICIN HYDROCHLORIDE
     Indication: BREAST CANCER METASTATIC
     Dosage: 4 CYCLES, NEOADJUVANT CHEMOTHERAPY
     Route: 065
     Dates: start: 20111108, end: 201201
  12. TAXOL [Suspect]
     Active Substance: PACLITAXEL
     Indication: BREAST CANCER METASTATIC
     Dosage: 1 CYCLE
     Route: 042
     Dates: start: 20120208, end: 20120208
  13. ARIMIDEX [Suspect]
     Active Substance: ANASTROZOLE
     Indication: DISEASE PROGRESSION
     Route: 065
     Dates: start: 20140520
  14. AFINITOR [Suspect]
     Active Substance: EVEROLIMUS
     Dosage: INCREASED DOSE OF 5 AND 10MG ALTERNATING
     Route: 065
  15. TAXOTERE [Suspect]
     Active Substance: DOCETAXEL
     Indication: BREAST CANCER METASTATIC
     Dosage: 1 CYCLE
     Route: 065
  16. TAMOXIFEN [Suspect]
     Active Substance: TAMOXIFEN
     Indication: BREAST CANCER RECURRENT
     Route: 065
     Dates: start: 20131210, end: 20140520
  17. AFINITOR [Suspect]
     Active Substance: EVEROLIMUS
     Indication: DISEASE PROGRESSION
     Route: 065
     Dates: start: 201602
  18. MULTIVITAMIN [Concomitant]
     Active Substance: VITAMINS
     Indication: PRODUCT USED FOR UNKNOWN INDICATION
     Route: 065
  19. HERCEPTIN [Suspect]
     Active Substance: TRASTUZUMAB
     Indication: DISEASE PROGRESSION
     Route: 065
     Dates: start: 20131228
  20. HERCEPTIN [Suspect]
     Active Substance: TRASTUZUMAB
     Route: 065
  21. FASLODEX [Suspect]
     Active Substance: FULVESTRANT
     Indication: DISEASE PROGRESSION
     Route: 065
  22. XELODA [Suspect]
     Active Substance: CAPECITABINE
     Indication: DISEASE PROGRESSION
     Route: 065
     Dates: end: 201602
  23. EXEMESTANE. [Suspect]
     Active Substance: EXEMESTANE
     Indication: DISEASE PROGRESSION
     Route: 065
     Dates: start: 201602

REACTIONS (9)
  - Breast cancer recurrent [Unknown]
  - Disease progression [Unknown]
  - Diarrhoea [Unknown]
  - Neuropathy peripheral [Not Recovered/Not Resolved]
  - Neuropathy peripheral [Unknown]
  - Fatigue [Unknown]
  - Anal incontinence [Unknown]
  - Hypoaesthesia oral [Recovered/Resolved]
  - Drug ineffective [Unknown]

NARRATIVE: CASE EVENT DATE: 2013
